FAERS Safety Report 17074521 (Version 2)
Quarter: 2019Q4

REPORT INFORMATION
  Report Type: Spontaneous
  Country: SA (occurrence: SA)
  Receive Date: 20191126
  Receipt Date: 20191129
  Transmission Date: 20200122
  Serious: Yes (Hospitalization, Other)
  Sender: FDA-Public Use
  Company Number: SA-VISTAPHARM, INC.-VER201911-001303

PATIENT
  Age: 24 Month
  Sex: Female

DRUGS (3)
  1. VIGABATRIN. [Concomitant]
     Active Substance: VIGABATRIN
     Indication: INFANTILE SPASMS
     Dosage: UNKNOWN
  2. LEVETIRACETAM. [Concomitant]
     Active Substance: LEVETIRACETAM
     Dosage: UNKNOWN
  3. VALPROIC ACID. [Suspect]
     Active Substance: VALPROIC ACID
     Indication: POST-TRAUMATIC EPILEPSY
     Dosage: UNKNOWN

REACTIONS (3)
  - Infantile spasms [Recovered/Resolved]
  - Muscle spasms [Recovered/Resolved]
  - Thrombocytopenia [Unknown]
